FAERS Safety Report 6382255 (Version 2)
Quarter: 2013Q3

REPORT INFORMATION
  Report Type: Spontaneous
  Country: US (occurrence: US)
  Receive Date: 20070814
  Receipt Date: 20130816
  Transmission Date: 20140515
  Serious: No
  Sender: FDA-Public Use
  Company Number: US-BRISTOL-MYERS SQUIBB COMPANY-13720370

PATIENT
  Age: 67 Year
  Sex: Female
  Weight: 99.77 kg

DRUGS (3)
  1. GLUCOVANCE [Suspect]
  2. BYETTA [Suspect]
     Indication: TYPE 2 DIABETES MELLITUS
     Dosage: (0.25 MG/ML)
     Route: 058
     Dates: start: 20070303
  3. MOBIC [Concomitant]

REACTIONS (2)
  - Rash [Unknown]
  - Paraesthesia [Unknown]
